FAERS Safety Report 13234078 (Version 3)
Quarter: 2017Q1

REPORT INFORMATION
  Report Type: Report from Study
  Country: CO (occurrence: CO)
  Receive Date: 20170215
  Receipt Date: 20170310
  Transmission Date: 20170428
  Serious: Yes (Hospitalization, Other)
  Sender: FDA-Public Use
  Company Number: PHHY2017CO020740

PATIENT
  Age: 59 Year
  Sex: Female
  Weight: 48 kg

DRUGS (5)
  1. COSENTYX [Suspect]
     Active Substance: SECUKINUMAB
     Indication: ANKYLOSING SPONDYLITIS
     Dosage: 150 MG, QW
     Route: 058
     Dates: start: 20161223, end: 20170125
  2. SULFASALAZINE DELAYED-RELEASE [Concomitant]
     Active Substance: SULFASALAZINE
     Indication: ANKYLOSING SPONDYLITIS
     Dosage: 50 MG, QD
     Route: 065
  3. AMLODIPINE [Concomitant]
     Active Substance: AMLODIPINE BESYLATE
     Indication: PRODUCT USED FOR UNKNOWN INDICATION
     Dosage: 5 MG, QD
     Route: 065
  4. TERIPARATIDE [Concomitant]
     Active Substance: TERIPARATIDE
     Indication: OSTEOPOROSIS
     Dosage: UNK UNK, DAILY
     Route: 065
  5. LOSARTAN. [Concomitant]
     Active Substance: LOSARTAN
     Indication: PRODUCT USED FOR UNKNOWN INDICATION
     Dosage: 50 MG, Q12H
     Route: 065

REACTIONS (6)
  - Dyspepsia [Recovered/Resolved]
  - Dysphagia [Unknown]
  - Odynophagia [Unknown]
  - Pharyngitis [Recovered/Resolved]
  - Gastric pH decreased [Recovered/Resolved]
  - Laryngitis [Unknown]

NARRATIVE: CASE EVENT DATE: 20170202
